FAERS Safety Report 9528539 (Version 1)
Quarter: 2013Q1

REPORT INFORMATION
  Report Type: Spontaneous
  Country: US (occurrence: None)
  Receive Date: 20130314
  Receipt Date: 20130314
  Transmission Date: 20140127
  Serious: No
  Sender: FDA-Public Use
  Company Number: 1301USA008708

PATIENT
  Sex: Female

DRUGS (2)
  1. PEGINTRON [Suspect]
  2. VICTRELIS (BOCEPREVIR) CAPSULE, 200MG [Suspect]
     Route: 048

REACTIONS (3)
  - Intervertebral disc disorder [None]
  - Alopecia [None]
  - Pruritus [None]
